FAERS Safety Report 6491153-2 (Version None)
Quarter: 2009Q4

REPORT INFORMATION
  Report Type: 
  Country: None (occurrence: None)
  Receive Date: 20091125
  Receipt Date: 20090522
  Transmission Date: 20100525
  Serious: Yes (Hospitalization)
  Sender: FDA-Public Use
  Company Number: 2009BH009060

PATIENT
  Age: 58 Year
  Sex: Male

DRUGS (22)
  1. DIANEAL [Suspect]
     Indication: PERITONEAL DIALYSIS
     Dosage: 12.5 L; EVERY DAY; IP
     Route: 033
     Dates: start: 20040101
  2. ASPIRIN [Concomitant]
  3. COREG [Concomitant]
  4. CELEXA [Concomitant]
  5. CLONIDINE [Concomitant]
  6. HECTOROL [Concomitant]
  7. EPOGEN [Concomitant]
  8. LOVENOX [Concomitant]
  9. NEPHROCAPS [Concomitant]
  10. NEURONTIN [Concomitant]
  11. NOVOLOG [Concomitant]
  12. LANTUS [Concomitant]
  13. LISINOPRIL [Concomitant]
  14. NORTRIPTYLINE [Concomitant]
  15. PANTOPRAZOLE [Concomitant]
  16. RENAGEL [Concomitant]
  17. WARFARIN [Concomitant]
  18. HEPARIN [Concomitant]
  19. DILAUDID [Concomitant]
  20. ATIVAN [Concomitant]
  21. AMBIEN [Concomitant]
  22. EXTRANEAL [Suspect]
     Indication: PERITONEAL DIALYSIS
     Dosage: 2.5 L; EVERY DAY; IP
     Route: 033

REACTIONS (5)
  - ASTHENIA [None]
  - BLOOD PRESSURE DECREASED [None]
  - FLUID OVERLOAD [None]
  - MUSCLE SPASMS [None]
  - WEIGHT DECREASED [None]
